FAERS Safety Report 4782179-5 (Version None)
Quarter: 2005Q3

REPORT INFORMATION
  Report Type: 
  Country: None (occurrence: None)
  Receive Date: 20050927
  Receipt Date: 20050823
  Transmission Date: 20060218
  Serious: No
  Sender: FDA-Public Use
  Company Number: USA0508106199

PATIENT
  Age: 7 Year
  Sex: Male
  Weight: 33 kg

DRUGS (1)
  1. STRATTERA [Suspect]
     Indication: ATTENTION DEFICIT/HYPERACTIVITY DISORDER
     Dosage: 40 MG AT BEDTIME
     Dates: start: 20040101

REACTIONS (10)
  - ABDOMINAL PAIN UPPER [None]
  - CONSTIPATION [None]
  - DRUG EFFECT DECREASED [None]
  - FATIGUE [None]
  - GASTROENTERITIS VIRAL [None]
  - HAEMATOCHEZIA [None]
  - HYPERHIDROSIS [None]
  - PERSONALITY CHANGE [None]
  - RECTAL TENESMUS [None]
  - VOMITING [None]
